FAERS Safety Report 6113706-3 (Version None)
Quarter: 2009Q1

REPORT INFORMATION
  Report Type: 
  Country: None (occurrence: None)
  Receive Date: 20090312
  Receipt Date: 20090304
  Transmission Date: 20090719
  Serious: Yes (Hospitalization)
  Sender: FDA-Public Use
  Company Number: US-ELI_LILLY_AND_COMPANY-US200903001173

PATIENT
  Sex: Female

DRUGS (13)
  1. EVISTA [Suspect]
     Indication: BONE DISORDER
     Dosage: 60 MG, DAILY (1/D)
     Route: 065
     Dates: start: 19990101
  2. POTASSIUM CHLORIDE [Concomitant]
     Dosage: UNK, UNKNOWN
     Route: 065
  3. LIPITOR [Concomitant]
     Dosage: UNK, UNKNOWN
     Route: 065
  4. SYNTHROID [Concomitant]
     Dosage: UNK, UNKNOWN
     Route: 065
  5. REMERON [Concomitant]
     Dosage: UNK, UNKNOWN
     Route: 065
  6. TENORMIN [Concomitant]
     Dosage: UNK, UNKNOWN
     Route: 065
  7. AMARYL [Concomitant]
     Dosage: UNK, UNKNOWN
     Route: 065
  8. CLONAZEPAM [Concomitant]
     Dosage: UNK, UNKNOWN
     Route: 065
  9. COLACE [Concomitant]
     Dosage: UNK, UNKNOWN
     Route: 065
  10. SENOKOT [Concomitant]
     Dosage: UNK, UNKNOWN
     Route: 065
  11. PRILOSEC [Concomitant]
     Dosage: UNK, UNKNOWN
     Route: 065
  12. LEVEMIR [Concomitant]
     Dosage: UNK, UNKNOWN
     Route: 065
  13. IMDUR [Concomitant]
     Dosage: UNK, UNKNOWN
     Route: 065

REACTIONS (4)
  - HYPERCHOLESTEROLAEMIA [None]
  - HYPERTENSION [None]
  - INTERVERTEBRAL DISC DISORDER [None]
  - OEDEMA PERIPHERAL [None]
